FAERS Safety Report 11125111 (Version 1)
Quarter: 2015Q2

REPORT INFORMATION
  Report Type: Other
  Country: DE (occurrence: DE)
  Receive Date: 20150520
  Receipt Date: 20150520
  Transmission Date: 20150821
  Serious: Yes (Congenital Anomaly, Other)
  Sender: FDA-Public Use
  Company Number: DE-MYLANLABS-2015M1016062

PATIENT

DRUGS (4)
  1. BUSCOPAN [Concomitant]
     Active Substance: BUTYLSCOPOLAMINE BROMIDE
     Indication: LABOUR PAIN
     Dosage: UNK
     Route: 064
     Dates: start: 20140726, end: 20140726
  2. PROPRANOLOL [Concomitant]
     Active Substance: PROPRANOLOL\PROPRANOLOL HYDROCHLORIDE
     Indication: PRODUCT USED FOR UNKNOWN INDICATION
     Dosage: 10 [MG/D ]
     Route: 064
     Dates: start: 20131025, end: 20140726
  3. CYTOTEC [Concomitant]
     Active Substance: MISOPROSTOL
     Indication: LABOUR INDUCTION
     Dosage: UNK
     Route: 064
     Dates: start: 20140724, end: 20140724
  4. VENLAFAXINE [Suspect]
     Active Substance: VENLAFAXINE HYDROCHLORIDE
     Indication: DEPRESSION
     Dosage: 300 [MG/D ]
     Route: 064
     Dates: start: 20131025, end: 20140726

REACTIONS (7)
  - Hypotonia neonatal [Unknown]
  - Dysphagia [Unknown]
  - Foetal exposure during pregnancy [Unknown]
  - Seizure [Unknown]
  - Hypertelorism of orbit [Not Recovered/Not Resolved]
  - Visual impairment [Not Recovered/Not Resolved]
  - Trismus [Unknown]

NARRATIVE: CASE EVENT DATE: 20140726
